FAERS Safety Report 16210501 (Version 4)
Quarter: 2020Q1

REPORT INFORMATION
  Report Type: Spontaneous
  Country: BR (occurrence: BR)
  Receive Date: 20190418
  Receipt Date: 20200210
  Transmission Date: 20200409
  Serious: Yes (Other)
  Sender: FDA-Public Use
  Company Number: BR-ROCHE-2302483

PATIENT
  Age: 58 Year
  Sex: Female

DRUGS (10)
  1. AVASTIN [Suspect]
     Active Substance: BEVACIZUMAB
     Dosage: IN APR/2017, SHE RECEIVED MOST RECENT DOSE OF BEVACIZUMAB.
     Route: 065
     Dates: start: 201605
  2. CARBOPLATIN. [Suspect]
     Active Substance: CARBOPLATIN
     Indication: OVARIAN CANCER
     Dosage: 5/6 CYCLE AUC
     Route: 065
     Dates: start: 201602
  3. LIPOSOMAL DOXORUBICIN HYDROCHLORIDE [Suspect]
     Active Substance: DOXORUBICIN HYDROCHLORIDE
     Route: 065
     Dates: start: 201812
  4. LIPOSOMAL DOXORUBICIN HYDROCHLORIDE [Suspect]
     Active Substance: DOXORUBICIN HYDROCHLORIDE
     Indication: OVARIAN CANCER
     Route: 065
     Dates: start: 201707, end: 201801
  5. OLAPARIB. [Suspect]
     Active Substance: OLAPARIB
     Indication: OVARIAN CANCER
     Route: 065
     Dates: start: 201804, end: 201811
  6. ATORVASTATIN [Concomitant]
     Active Substance: ATORVASTATIN
  7. AVASTIN [Suspect]
     Active Substance: BEVACIZUMAB
     Indication: OVARIAN CANCER
     Route: 065
     Dates: end: 201601
  8. CARBOPLATIN. [Suspect]
     Active Substance: CARBOPLATIN
     Dosage: AUC = 5
     Route: 065
     Dates: start: 201707, end: 201801
  9. PACLITAXEL. [Suspect]
     Active Substance: PACLITAXEL
     Indication: OVARIAN CANCER
     Dosage: 6 CYCLES
     Route: 065
     Dates: start: 201602
  10. ENALAPRIL [Concomitant]
     Active Substance: ENALAPRIL

REACTIONS (8)
  - Headache [Unknown]
  - Confusional state [Unknown]
  - Nervous system disorder [Unknown]
  - Lymphadenopathy [Unknown]
  - Hepatic failure [Unknown]
  - Dysarthria [Unknown]
  - Ovarian cancer metastatic [Unknown]
  - Hydrocephalus [Unknown]
